FAERS Safety Report 15833031 (Version 1)
Quarter: 2018Q4

REPORT INFORMATION
  Report Type: Spontaneous
  Country: US (occurrence: US)
  Receive Date: 20181220
  Receipt Date: 20181220
  Transmission Date: 20190205
  Serious: Yes (Life-Threatening, Hospitalization)
  Sender: FDA-Public Use
  Company Number: None

PATIENT
  Age: 72 Year
  Sex: Male

DRUGS (1)
  1. SULFAMETHIZOLE/TRIMETHOPRIM [Suspect]
     Active Substance: SULFAMETHOXAZOLE\TRIMETHOPRIM
     Indication: URINARY TRACT INFECTION
     Route: 048
     Dates: start: 20180918, end: 20181010

REACTIONS (11)
  - White blood cell count decreased [None]
  - Hepatitis [None]
  - Pancytopenia [None]
  - Hyponatraemia [None]
  - Fatigue [None]
  - Metabolic acidosis [None]
  - Agranulocytosis [None]
  - Parvovirus B19 infection [None]
  - Chills [None]
  - Acute kidney injury [None]
  - Febrile infection [None]

NARRATIVE: CASE EVENT DATE: 20181010
